FAERS Safety Report 23126535 (Version 1)
Quarter: 2023Q4

REPORT INFORMATION
  Report Type: Spontaneous
  Country: GB (occurrence: GB)
  Receive Date: 20231030
  Receipt Date: 20231030
  Transmission Date: 20240110
  Serious: Yes (Other)
  Sender: FDA-Public Use
  Company Number: None

PATIENT
  Age: 62 Year
  Sex: Female
  Weight: 51 kg

DRUGS (10)
  1. DOXYCYCLINE [Suspect]
     Active Substance: DOXYCYCLINE
     Indication: Product used for unknown indication
     Dosage: UNIT DOSE: 100 MG, DURATION : 7 DAYS, THERAPY END DATE : NASK
     Route: 065
     Dates: start: 20231009
  2. CETRABEN [Concomitant]
     Indication: Product used for unknown indication
     Dosage: USE AS DIRECTED, EMOLLIENT CREAM
     Dates: start: 20201216
  3. CITALOPRAM [Concomitant]
     Active Substance: CITALOPRAM HYDROBROMIDE
     Indication: Product used for unknown indication
     Dosage: 1 DOSAGE FORMS DAILY; UNIT DOSE : 1 DF, OD
     Dates: start: 20220822
  4. CLARITHROMYCIN [Concomitant]
     Active Substance: CLARITHROMYCIN
     Indication: Product used for unknown indication
     Dosage: 2 DOSAGE FORMS DAILY; UNIT DOSE: 1 DF, FREQUENCY : 1 IN 12 HOURS
     Dates: start: 20231018
  5. DICLOFENAC DIETHYLAMINE [Concomitant]
     Active Substance: DICLOFENAC DIETHYLAMINE
     Indication: Product used for unknown indication
     Dosage: APPLY, UNIT DOSE : 3 DF, FREQUENCY TIME: 1 DAY
     Dates: start: 20201216
  6. FEXOFENADINE [Concomitant]
     Active Substance: FEXOFENADINE HYDROCHLORIDE
     Indication: Product used for unknown indication
     Dosage: 1 DOSAGE FORMS DAILY; UNIT DOSE : 1 DF, OD
     Dates: start: 20210216
  7. LANSOPRAZOLE [Concomitant]
     Active Substance: LANSOPRAZOLE
     Indication: Product used for unknown indication
     Dosage: 1 DOSAGE FORMS DAILY; UNIT DOSE : 1 DF, OD
     Dates: start: 20201216
  8. MOMETASONE [Concomitant]
     Active Substance: MOMETASONE
     Indication: Product used for unknown indication
     Dosage: 1 DOSAGE FORMS DAILY; UNIT DOSE : 1 DF, OD
     Dates: start: 20201216
  9. TRELEGY ELLIPTA [Concomitant]
     Active Substance: FLUTICASONE FUROATE\UMECLIDINIUM BROMIDE\VILANTEROL TRIFENATATE
     Indication: Product used for unknown indication
     Dosage: 1 DOSAGE FORMS DAILY; UNIT DOSE : 1 DF, OD
     Route: 055
     Dates: start: 20221219
  10. VENTOLIN [Concomitant]
     Active Substance: ALBUTEROL SULFATE
     Indication: Product used for unknown indication
     Dosage: INHALE 1-2 DOSES UP TO FOUR TIMES A DAY WHEN RE...
     Route: 055
     Dates: start: 20230620

REACTIONS (1)
  - Hallucination [Recovered/Resolved]
